FAERS Safety Report 5599583-8 (Version None)
Quarter: 2008Q1

REPORT INFORMATION
  Report Type: 
  Country: None (occurrence: None)
  Receive Date: 20080114
  Receipt Date: 20080109
  Transmission Date: 20080703
  Serious: Yes (Hospitalization)
  Sender: FDA-Public Use
  Company Number: 2007RL000557

PATIENT
  Age: 61 Year
  Sex: Male
  Weight: 103.4201 kg

DRUGS (16)
  1. LOVAZA [Suspect]
     Dosage: 2 GM;QD;PO; 4 GM;QD;PO 2 GM;QD;PO
     Route: 048
     Dates: end: 20071125
  2. LOVAZA [Suspect]
     Dosage: 2 GM;QD;PO; 4 GM;QD;PO 2 GM;QD;PO
     Route: 048
     Dates: start: 20050101
  3. LOVAZA [Suspect]
     Dosage: 2 GM;QD;PO; 4 GM;QD;PO 2 GM;QD;PO
     Route: 048
     Dates: start: 20080101
  4. ANDROGEL [Concomitant]
  5. VYTORIN [Concomitant]
  6. HUMALOG [Concomitant]
  7. LANTUS [Concomitant]
  8. NIASPAN [Concomitant]
  9. CLONIDINE [Concomitant]
  10. FUROSEMIDE [Concomitant]
  11. KLOR-CON [Concomitant]
  12. METOPROLOL TARTRATE [Concomitant]
  13. OMEPRAZOLE [Concomitant]
  14. NORVASC [Concomitant]
  15. AVAPRO [Concomitant]
  16. OMEGA 3 [Concomitant]

REACTIONS (2)
  - ACUTE PULMONARY OEDEMA [None]
  - ANAESTHETIC COMPLICATION [None]
